FAERS Safety Report 7597104 (Version 2)
Quarter: 2013Q3

REPORT INFORMATION
  Report Type: Report from Study
  Country: NL (occurrence: NL)
  Receive Date: 20100920
  Receipt Date: 20130807
  Transmission Date: 20140515
  Serious: Yes (Hospitalization)
  Sender: FDA-Public Use
  Company Number: NL-ROCHE-726986

PATIENT
  Age: 69 Year
  Sex: 0
  Weight: 76 kg

DRUGS (7)
  1. CAPECITABINE [Suspect]
     Indication: GASTRIC CANCER
     Dosage: IN DIVIDED DOSES, FROM DAY 1 TO 14 EVERY 3 WEEKS, STRENGTH 500 MG OR 150 MG TABLET AS PER PROTOCOL.
     Route: 048
     Dates: start: 20100826
  2. CISPLATIN [Suspect]
     Indication: GASTRIC CANCER
     Dosage: DAY 1, DOSAGE AS PER PROTOCOL. DATE OF LAST DOSE PRIOR TO SAE: 09/SEP/2010
     Route: 042
     Dates: start: 20100826
  3. EPIRUBICIN [Suspect]
     Indication: GASTRIC CANCER
     Dosage: DAY 1, DOSAGE PER PROTOCOL. DATE OF LAST DOSE PRIOR TO SAE: 09/SEP/2010
     Route: 042
     Dates: start: 20100826
  4. OMEPRAZOLE [Concomitant]
  5. COAPROVEL [Concomitant]
  6. PRIMPERAN (NETHERLANDS) [Concomitant]
  7. SIMVASTATIN [Concomitant]

REACTIONS (5)
  - Pyrexia [Recovered/Resolved]
  - Neutropenia [Recovered/Resolved]
  - Convulsion [Recovered/Resolved]
  - Asthenia [Recovered/Resolved]
  - Aphasia [Recovered/Resolved]
